FAERS Safety Report 21503627 (Version 3)
Quarter: 2022Q4

REPORT INFORMATION
  Report Type: Report from Study
  Country: US (occurrence: US)
  Receive Date: 20221025
  Receipt Date: 20221221
  Transmission Date: 20230113
  Serious: Yes (Hospitalization, Other)
  Sender: FDA-Public Use
  Company Number: US-NOVARTISPH-NVSC2022US236370

PATIENT
  Sex: Female

DRUGS (2)
  1. ENTRESTO [Suspect]
     Active Substance: SACUBITRIL\VALSARTAN
     Indication: Product used for unknown indication
     Dosage: 1 DOSAGE FORM (24/26 MG), BID
     Route: 048
     Dates: start: 202202
  2. ENTRESTO [Suspect]
     Active Substance: SACUBITRIL\VALSARTAN
     Dosage: 1 DOSAGE FORM (49/51MG)
     Route: 065

REACTIONS (8)
  - Heart rate decreased [Unknown]
  - Balance disorder [Unknown]
  - Blood pressure increased [Unknown]
  - Arthropathy [Unknown]
  - Depressed mood [Unknown]
  - Spinal osteoarthritis [Unknown]
  - Spinal pain [Unknown]
  - Sciatica [Unknown]
